FAERS Safety Report 14511533 (Version 1)
Quarter: 2018Q1

REPORT INFORMATION
  Report Type: Spontaneous
  Country: US (occurrence: US)
  Receive Date: 20180209
  Receipt Date: 20180209
  Transmission Date: 20180509
  Serious: No
  Sender: FDA-Public Use
  Company Number: US-ENDO PHARMACEUTICALS INC-2017-003257

PATIENT
  Sex: Male

DRUGS (1)
  1. TESTOSTERONE GEL [Suspect]
     Active Substance: TESTOSTERONE
     Indication: PRODUCT USED FOR UNKNOWN INDICATION
     Dosage: UNK UNKNOWN, APPLIED TO INNER THIGHS
     Route: 061
     Dates: start: 2017

REACTIONS (2)
  - Vasodilatation [Not Recovered/Not Resolved]
  - Application site erythema [Not Recovered/Not Resolved]

NARRATIVE: CASE EVENT DATE: 2017
